FAERS Safety Report 9070934 (Version 2)
Quarter: 2013Q2

REPORT INFORMATION
  Report Type: Spontaneous
  Country: GB (occurrence: GB)
  Receive Date: 20130216
  Receipt Date: 20130415
  Transmission Date: 20140414
  Serious: No
  Sender: FDA-Public Use
  Company Number: GB-ACCORD-016327

PATIENT
  Sex: Male
  Weight: 72.6 kg

DRUGS (4)
  1. LANSOPRAZOLE [Concomitant]
     Indication: GASTROOESOPHAGEAL REFLUX DISEASE
     Dates: start: 20001031
  2. CLOPIDOGREL [Concomitant]
     Indication: CARDIAC VALVE DISEASE
     Route: 048
     Dates: start: 20081030
  3. SIMVASTATIN [Suspect]
     Indication: PROPHYLAXIS
     Dosage: ONGOING
     Route: 048
     Dates: start: 20100930
  4. GAVISCON [Concomitant]
     Indication: GASTROOESOPHAGEAL REFLUX DISEASE
     Dosage: GAVISCON MASS
     Route: 048
     Dates: start: 20050815

REACTIONS (1)
  - Nightmare [Unknown]
